FAERS Safety Report 9197935 (Version 1)
Quarter: 2013Q1

REPORT INFORMATION
  Report Type: Spontaneous
  Country: US (occurrence: US)
  Receive Date: 20130328
  Receipt Date: 20130328
  Transmission Date: 20140127
  Serious: Yes (Other)
  Sender: FDA-Public Use
  Company Number: US-US-EMD SERONO, INC.-7030238

PATIENT
  Sex: Female
  Weight: 89 kg

DRUGS (2)
  1. REBIF [Suspect]
     Indication: MULTIPLE SCLEROSIS
     Route: 058
     Dates: start: 20100712, end: 2011
  2. OXYCONTIN [Concomitant]
     Indication: FIBROMYALGIA

REACTIONS (7)
  - Anaphylactic reaction [Recovered/Resolved]
  - Malaise [Unknown]
  - Musculoskeletal stiffness [Unknown]
  - Pyrexia [Unknown]
  - Pain [Unknown]
  - Injection site pain [Unknown]
  - Injection site erythema [Unknown]
